FAERS Safety Report 9478296 (Version 1)
Quarter: 2013Q3

REPORT INFORMATION
  Report Type: Spontaneous
  Country: AU (occurrence: None)
  Receive Date: 20130821
  Receipt Date: 20130821
  Transmission Date: 20140515
  Serious: Yes (Hospitalization, Other)
  Sender: FDA-Public Use
  Company Number: AUR-APL-2013-06859

PATIENT
  Age: 50 Year
  Sex: Male

DRUGS (4)
  1. CIPROFLOXACIN [Suspect]
     Indication: PRODUCT USED FOR UNKNOWN INDICATION
  2. VANCOMYCIN HYDROCHLORIDE [Suspect]
     Indication: PRODUCT USED FOR UNKNOWN INDICATION
  3. BENZYLPENICILLIN (BENZYLPENICILLIN) [Suspect]
     Indication: PRODUCT USED FOR UNKNOWN INDICATION
  4. XIGRIS [Suspect]
     Indication: TOXIC SHOCK SYNDROME
     Route: 042
     Dates: start: 20070115, end: 20070118

REACTIONS (8)
  - Pyrexia [None]
  - Hepatitis cholestatic [None]
  - Renal failure acute [None]
  - Confusional state [None]
  - Disorientation [None]
  - Withdrawal syndrome [None]
  - Diabetes mellitus [None]
  - Large intestine polyp [None]
